FAERS Safety Report 24438988 (Version 2)
Quarter: 2024Q4

REPORT INFORMATION
  Report Type: Spontaneous
  Country: JP (occurrence: JP)
  Receive Date: 20241015
  Receipt Date: 20241115
  Transmission Date: 20250115
  Serious: Yes (Hospitalization)
  Sender: BIOVITRUM
  Company Number: JP-ASTRAZENECA-240104958_070810_P_1

PATIENT

DRUGS (3)
  1. SYNAGIS [Suspect]
     Active Substance: PALIVIZUMAB
     Indication: Product used for unknown indication
     Dosage: DOSE UNKNOWN
     Route: 030
  2. SYNAGIS [Suspect]
     Active Substance: PALIVIZUMAB
     Dosage: DOSE UNKNOWN
     Route: 030
  3. SYNAGIS [Suspect]
     Active Substance: PALIVIZUMAB
     Dosage: DOSE UNKNOWN
     Route: 030

REACTIONS (2)
  - Physical deconditioning [Unknown]
  - Respiratory syncytial virus infection [Unknown]
